FAERS Safety Report 9717407 (Version 1)
Quarter: 2013Q4

REPORT INFORMATION
  Report Type: Spontaneous
  Country: US (occurrence: US)
  Receive Date: 20131127
  Receipt Date: 20131127
  Transmission Date: 20140711
  Serious: No
  Sender: FDA-Public Use
  Company Number: US-GILEAD-2008-0019513

PATIENT
  Age: 59 Year
  Sex: Female
  Weight: 124.74 kg

DRUGS (6)
  1. LETAIRIS [Suspect]
     Indication: PULMONARY ARTERIAL HYPERTENSION
     Route: 048
     Dates: start: 20081009
  2. FUROSEMIDE [Concomitant]
  3. ZOCOR [Concomitant]
  4. ADVAIR [Concomitant]
  5. SINGULAIR [Concomitant]
  6. ZYRTEC [Concomitant]

REACTIONS (1)
  - Local swelling [Not Recovered/Not Resolved]
